FAERS Safety Report 6142330-1 (Version None)
Quarter: 2009Q2

REPORT INFORMATION
  Report Type: 
  Country: None (occurrence: None)
  Receive Date: 20090403
  Receipt Date: 20070925
  Transmission Date: 20091009
  Serious: Yes (Death, Hospitalization)
  Sender: FDA-Public Use
  Company Number: US-ASTRAZENECA-2006UW21592

PATIENT
  Age: 10851 Day
  Sex: Female
  Weight: 72.6 kg

DRUGS (19)
  1. SEROQUEL [Suspect]
     Indication: BIPOLAR DISORDER
     Dosage: 100 MG - 200 MG
     Route: 048
     Dates: start: 20030403
  2. RISPERDAL [Concomitant]
  3. ZYPREXA [Concomitant]
  4. PAXIL [Concomitant]
  5. ATIVAN [Concomitant]
  6. KETOROLAC [Concomitant]
  7. GABAPENTIN [Concomitant]
  8. VICODIN [Concomitant]
  9. CARBAMAZEPINE [Concomitant]
  10. DESYREL [Concomitant]
  11. NALOXONE [Concomitant]
  12. DIPHENHYDRAMINE [Concomitant]
  13. TYLENOL [Concomitant]
  14. FLEXERIL [Concomitant]
  15. ROBITUSSIN DM [Concomitant]
  16. ENTEX SOLUTION [Concomitant]
  17. VALIUM [Concomitant]
  18. MOTRIN [Concomitant]
  19. ROBAXIN [Concomitant]

REACTIONS (7)
  - ANXIETY [None]
  - DEATH [None]
  - DIABETES MELLITUS [None]
  - HALLUCINATION [None]
  - MAJOR DEPRESSION [None]
  - PSYCHOTIC DISORDER [None]
  - SUICIDAL BEHAVIOUR [None]
